FAERS Safety Report 25006561 (Version 1)
Quarter: 2025Q1

REPORT INFORMATION
  Report Type: Spontaneous
  Country: DE (occurrence: DE)
  Receive Date: 20250225
  Receipt Date: 20250225
  Transmission Date: 20250408
  Serious: Yes (Other)
  Sender: PROVEPHARM
  Company Number: DE-Provepharm-2171667

PATIENT
  Sex: Female

DRUGS (2)
  1. PROVAYBLUE [Suspect]
     Active Substance: METHYLENE BLUE
     Indication: Vasoplegia syndrome
  2. Arterenol? 1 mg/ml, Cheplapharm Arzeimittel GmbH, Mesekenhagen, German [Concomitant]

REACTIONS (5)
  - Pulmonary arterial pressure increased [Recovered/Resolved]
  - Incorrect dose administered [Unknown]
  - Product use in unapproved indication [Unknown]
  - Chromaturia [Recovered/Resolved]
  - Pulmonary hypertensive crisis [Recovered/Resolved]
